FAERS Safety Report 5312992-7 (Version None)
Quarter: 2007Q2

REPORT INFORMATION
  Report Type: 
  Country: None (occurrence: None)
  Receive Date: 20070430
  Receipt Date: 20070418
  Transmission Date: 20071010
  Serious: Yes (Other)
  Sender: FDA-Public Use
  Company Number: US-PFIZER INC-2006136881

PATIENT
  Sex: Male
  Weight: 70.3 kg

DRUGS (1)
  1. BEXTRA [Suspect]
     Indication: ARTHRITIS
     Route: 048

REACTIONS (3)
  - CEREBRAL INFARCTION [None]
  - HEMIPARESIS [None]
  - PERIPHERAL VASCULAR DISORDER [None]
